FAERS Safety Report 12426251 (Version 3)
Quarter: 2016Q3

REPORT INFORMATION
  Report Type: Spontaneous
  Country: US (occurrence: US)
  Receive Date: 20160601
  Receipt Date: 20160727
  Transmission Date: 20161109
  Serious: Yes (Hospitalization)
  Sender: FDA-Public Use
  Company Number: US-JNJFOC-20160528223

PATIENT
  Sex: Male
  Weight: 77.11 kg

DRUGS (2)
  1. KEPPRA [Concomitant]
     Active Substance: LEVETIRACETAM
     Indication: EPILEPSY
     Route: 065
  2. RISPERDAL [Suspect]
     Active Substance: RISPERIDONE
     Indication: PSYCHOMOTOR HYPERACTIVITY
     Dosage: INITIATED ON AN UNSPECIFIED DATE AT THE END OF 2003 AND BEGINNING OF 2004
     Route: 048
     Dates: end: 2009

REACTIONS (5)
  - Mental disorder [Unknown]
  - Product use issue [Unknown]
  - Incorrect dose administered [Unknown]
  - Off label use [Unknown]
  - Breast enlargement [Not Recovered/Not Resolved]

NARRATIVE: CASE EVENT DATE: 2007
